FAERS Safety Report 7498313-2 (Version None)
Quarter: 2011Q2

REPORT INFORMATION
  Report Type: 
  Country: None (occurrence: None)
  Receive Date: 20110524
  Receipt Date: 20110211
  Transmission Date: 20111010
  Serious: No
  Sender: FDA-Public Use
  Company Number: US-BAYER-2011-014381

PATIENT
  Age: 20 Year
  Sex: Female

DRUGS (2)
  1. YAZ [Suspect]
     Indication: POST COITAL CONTRACEPTION
     Dosage: UNK
     Dates: start: 20101212, end: 20101212
  2. LEVONORGESTREL [Suspect]
     Indication: POST COITAL CONTRACEPTION
     Dosage: 0.75 MG, UNK
     Route: 048
     Dates: start: 20101213, end: 20101213

REACTIONS (2)
  - MENSTRUATION IRREGULAR [None]
  - AMENORRHOEA [None]
